FAERS Safety Report 7226284-2 (Version None)
Quarter: 2011Q1

REPORT INFORMATION
  Report Type: 
  Country: None (occurrence: None)
  Receive Date: 20110114
  Receipt Date: 20110105
  Transmission Date: 20110831
  Serious: Yes (Other)
  Sender: FDA-Public Use
  Company Number: PHHY2009AU27198

PATIENT
  Sex: Female

DRUGS (1)
  1. GLEEVEC [Suspect]
     Indication: CHRONIC MYELOID LEUKAEMIA
     Dosage: 400 MG, UNK
     Route: 048
     Dates: start: 20060901

REACTIONS (6)
  - MUSCLE SPASMS [None]
  - LUMBAR VERTEBRAL FRACTURE [None]
  - MYELOPATHY [None]
  - NAUSEA [None]
  - EYE PAIN [None]
  - HYPOAESTHESIA [None]
